FAERS Safety Report 24337577 (Version 1)
Quarter: 2024Q3

REPORT INFORMATION
  Report Type: Spontaneous
  Country: CN (occurrence: CN)
  Receive Date: 20240919
  Receipt Date: 20240919
  Transmission Date: 20241017
  Serious: No
  Sender: ROCHE
  Company Number: CN-ROCHE-3466508

PATIENT
  Age: 28 Year
  Sex: Female
  Weight: 80.0 kg

DRUGS (1)
  1. TAMIFLU [Suspect]
     Active Substance: OSELTAMIVIR PHOSPHATE
     Indication: Product used for unknown indication
     Route: 048

REACTIONS (4)
  - Dizziness [Unknown]
  - Nausea [Unknown]
  - Head discomfort [Unknown]
  - Pyrexia [Unknown]
